FAERS Safety Report 16666879 (Version 1)
Quarter: 2019Q3

REPORT INFORMATION
  Report Type: Report from Study
  Country: US (occurrence: US)
  Receive Date: 20190805
  Receipt Date: 20190805
  Transmission Date: 20191004
  Serious: Yes (Hospitalization, Other)
  Sender: FDA-Public Use
  Company Number: US-AUROBINDO-AUR-APL-2019-044288

PATIENT

DRUGS (1)
  1. AMIODARONE HYDROCHLORIDE. [Suspect]
     Active Substance: AMIODARONE HYDROCHLORIDE
     Indication: ATRIAL FIBRILLATION
     Dosage: UNK, SEVERAL LOADING DOSES
     Route: 042

REACTIONS (10)
  - Thyroid mass [Recovered/Resolved]
  - Hyperhidrosis [Recovered/Resolved]
  - Pulmonary arterial hypertension [Recovered/Resolved]
  - Condition aggravated [Recovered/Resolved]
  - Right ventricular failure [Recovered/Resolved]
  - Cardiac arrest [Recovered/Resolved]
  - Right atrial dilatation [Recovered/Resolved]
  - Hyperthyroidism [Recovered/Resolved]
  - Nausea [Recovered/Resolved]
  - Right ventricular dilatation [Recovered/Resolved]
